FAERS Safety Report 17804652 (Version 2)
Quarter: 2020Q2

REPORT INFORMATION
  Report Type: Report from Study
  Country: IT (occurrence: IT)
  Receive Date: 20200519
  Receipt Date: 20200617
  Transmission Date: 20200714
  Serious: Yes (Other)
  Sender: FDA-Public Use
  Company Number: IT-PURDUE-GBR-2020-0076732

PATIENT
  Age: 43 Year
  Sex: Female

DRUGS (2)
  1. OXYCONTIN [Suspect]
     Active Substance: OXYCODONE HYDROCHLORIDE
     Indication: DRUG ABUSE
     Dosage: 80 MG, TOTAL (STRENGTH 40MG)
     Route: 048
     Dates: start: 20200413, end: 20200413
  2. PRAZEPAM [Suspect]
     Active Substance: PRAZEPAM
     Indication: DRUG ABUSE
     Dosage: UNK
     Route: 048
     Dates: start: 20200413, end: 20200413

REACTIONS (4)
  - Miosis [Recovered/Resolved]
  - Hypotonia [Recovered/Resolved]
  - Drug abuse [Recovered/Resolved]
  - Unresponsive to stimuli [Recovered/Resolved]

NARRATIVE: CASE EVENT DATE: 20200413
